FAERS Safety Report 21288544 (Version 1)
Quarter: 2022Q3

REPORT INFORMATION
  Report Type: Spontaneous
  Country: US (occurrence: US)
  Receive Date: 20220902
  Receipt Date: 20220902
  Transmission Date: 20221026
  Serious: No
  Sender: FDA-Public Use
  Company Number: US-ABBVIE-22K-163-4436226-00

PATIENT
  Age: 57 Year
  Sex: Female
  Weight: 51.756 kg

DRUGS (2)
  1. CREON [Suspect]
     Active Substance: PANCRELIPASE AMYLASE\PANCRELIPASE LIPASE\PANCRELIPASE PROTEASE
     Indication: Pancreatic failure
     Dosage: 2 WITH LARGE MEALS AND 1 WITH SMALL MEAL
     Route: 048
     Dates: start: 202106
  2. CREON [Suspect]
     Active Substance: PANCRELIPASE AMYLASE\PANCRELIPASE LIPASE\PANCRELIPASE PROTEASE
     Dosage: 2 WITH LARGE MEALS AND 1 WITH SMALL MEAL
     Route: 048

REACTIONS (6)
  - Palpitations [Not Recovered/Not Resolved]
  - Cardiac disorder [Unknown]
  - Product dose omission issue [Unknown]
  - Symptom recurrence [Unknown]
  - Product physical issue [Not Recovered/Not Resolved]
  - Unevaluable event [Unknown]

NARRATIVE: CASE EVENT DATE: 20220614
